FAERS Safety Report 10883453 (Version 1)
Quarter: 2015Q1

REPORT INFORMATION
  Report Type: Spontaneous
  Country: US (occurrence: None)
  Receive Date: 20150226
  Receipt Date: 20150226
  Transmission Date: 20150721
  Serious: No
  Sender: FDA-Public Use
  Company Number: None

PATIENT
  Age: 45 Year
  Sex: Female
  Weight: 90.72 kg

DRUGS (9)
  1. CELIXA [Concomitant]
  2. CLARATIN [Concomitant]
  3. ZOLFRAN [Concomitant]
  4. DILAUDID [Suspect]
     Active Substance: HYDROMORPHONE HYDROCHLORIDE
     Indication: BACK PAIN
     Dates: end: 20150222
  5. ONE A DAY WOMAN^S VITAMIN [Concomitant]
  6. TYLENOL [Concomitant]
     Active Substance: ACETAMINOPHEN
  7. HYDROCODONE [Concomitant]
     Active Substance: HYDROCODONE
  8. IRON [Concomitant]
     Active Substance: IRON
  9. ATIVAN [Concomitant]
     Active Substance: LORAZEPAM

REACTIONS (3)
  - Chest discomfort [None]
  - Dyspnoea [None]
  - Hypoaesthesia [None]

NARRATIVE: CASE EVENT DATE: 20150220
